FAERS Safety Report 6552954-5 (Version None)
Quarter: 2010Q1

REPORT INFORMATION
  Report Type: 
  Country: None (occurrence: None)
  Receive Date: 20100127
  Receipt Date: 20100114
  Transmission Date: 20100710
  Serious: Yes (Life-Threatening)
  Sender: FDA-Public Use
  Company Number: DE-RANBAXY-2010RR-30468

PATIENT
  Age: 75 Year
  Sex: Male
  Weight: 100 kg

DRUGS (2)
  1. CIPROFLOXACIN [Suspect]
     Indication: URINARY TRACT INFECTION
     Dosage: 1000 MG, UNK
     Route: 048
     Dates: start: 20091204, end: 20091210
  2. AGGRENOX [Concomitant]
     Dosage: UNK
     Route: 048
     Dates: start: 20091204, end: 20091210

REACTIONS (2)
  - PETECHIAE [None]
  - THROMBOCYTOPENIA [None]
